FAERS Safety Report 9034424 (Version 1)
Quarter: 2013Q1

REPORT INFORMATION
  Report Type: Spontaneous
  Country: GB (occurrence: None)
  Receive Date: 20130114
  Receipt Date: 20130114
  Transmission Date: 20140127
  Serious: Yes (Life-Threatening)
  Sender: FDA-Public Use
  Company Number: SP06321

PATIENT
  Age: 45 Year
  Sex: Female

DRUGS (6)
  1. MOVIPREP (SOLUTION) [Suspect]
     Indication: BOWEL PREPARATION
     Route: 048
     Dates: start: 20121211, end: 20121211
  2. BECLOMETASONE [Concomitant]
  3. CITALOPRAM [Concomitant]
  4. FROVATRIPTAN [Concomitant]
  5. NAPROXEN [Concomitant]
  6. SALBUTAMOL [Concomitant]

REACTIONS (6)
  - Swelling face [None]
  - Ear swelling [None]
  - Skin warm [None]
  - Malaise [None]
  - Tremor [None]
  - Convulsion [None]
